FAERS Safety Report 9376080 (Version 2)
Quarter: 2013Q4

REPORT INFORMATION
  Report Type: Spontaneous
  Country: IT (occurrence: IT)
  Receive Date: 20130630
  Receipt Date: 20131002
  Transmission Date: 20140711
  Serious: Yes (Death, Hospitalization)
  Sender: FDA-Public Use
  Company Number: IT-TEVA-416133ISR

PATIENT
  Age: 71 Year
  Sex: Male

DRUGS (5)
  1. CARBOPLATINO TEVA [Suspect]
     Indication: LUNG NEOPLASM MALIGNANT
     Route: 042
     Dates: start: 20130509
  2. PACLITAXEL ACTAVIS [Suspect]
     Indication: LUNG NEOPLASM MALIGNANT
     Route: 042
     Dates: start: 20130509
  3. AVASTIN [Suspect]
     Indication: LUNG NEOPLASM MALIGNANT
     Route: 042
     Dates: start: 20130509
  4. LYRICA [Suspect]
     Dosage: 225 MILLIGRAM DAILY;
     Route: 048
  5. TACHIPIRINA 1000 MG [Suspect]
     Indication: HYPERPYREXIA
     Dosage: 3000 MILLIGRAM DAILY;
     Route: 048

REACTIONS (2)
  - Acute myocardial infarction [Fatal]
  - Cardiogenic shock [Fatal]
